FAERS Safety Report 23961678 (Version 2)
Quarter: 2024Q2

REPORT INFORMATION
  Report Type: Spontaneous
  Country: CH (occurrence: CH)
  Receive Date: 20240611
  Receipt Date: 20240620
  Transmission Date: 20240716
  Serious: Yes (Life-Threatening, Hospitalization, Other)
  Sender: FDA-Public Use
  Company Number: None

PATIENT
  Age: 56 Year
  Sex: Female
  Weight: 72.4 kg

DRUGS (37)
  1. PREGABALIN [Suspect]
     Active Substance: PREGABALIN
     Indication: Product used for unknown indication
     Dosage: 300 MILLIGRAM, QD
     Route: 048
  2. QUETIAPINE [Suspect]
     Active Substance: QUETIAPINE
     Indication: Product used for unknown indication
     Dosage: 25 MILLIGRAM, PRN (AS NECESSARY)
     Route: 065
  3. HYDROMORPHONE [Suspect]
     Active Substance: HYDROMORPHONE
     Indication: Product used for unknown indication
     Dosage: UNK, (INTAKE MINIMUM TILL 24.04.2024)
     Route: 048
  4. HYDROMORPHONE [Suspect]
     Active Substance: HYDROMORPHONE
     Dosage: 4 MILLIGRAM, PRN (INTAKE MINIMUM TILL 24.04.2024) (AS NECESSARY)
     Route: 048
  5. HYDROMORPHONE HCL [Suspect]
     Active Substance: HYDROMORPHONE HYDROCHLORIDE
     Indication: Product used for unknown indication
     Dosage: UNK UNK, PRN (AS NECESSARY)
     Route: 065
  6. VALIUM [Suspect]
     Active Substance: DIAZEPAM
     Indication: Product used for unknown indication
     Dosage: 5 MILLIGRAM, PRN (AS NECESSARY)
     Route: 048
  7. THIAMINE HYDROCHLORIDE [Concomitant]
     Active Substance: THIAMINE HYDROCHLORIDE
     Dosage: 300 MILLIGRAM, QD
     Route: 048
  8. THIAMINE HYDROCHLORIDE [Concomitant]
     Active Substance: THIAMINE HYDROCHLORIDE
     Dosage: 300 MILLIGRAM, (100MG/ML)
     Route: 042
  9. BILASTINE [Concomitant]
     Active Substance: BILASTINE
     Dosage: 20 MILLIGRAM, BID (12 HOURS)
     Route: 048
  10. CALCIUM\CHOLECALCIFEROL [Concomitant]
     Active Substance: CALCIUM\CHOLECALCIFEROL
     Dosage: 1 DOSAGE FORM, QD (1000MG/800I.E.)
     Route: 048
  11. COLCHICINE [Concomitant]
     Active Substance: COLCHICINE
     Dosage: 1 MILLIGRAM, QD
     Route: 048
  12. COLOSAN [Concomitant]
     Dosage: UNK, BID (12 HOUR)
     Route: 065
  13. CONCERTA [Concomitant]
     Active Substance: METHYLPHENIDATE HYDROCHLORIDE
     Dosage: 54 MILLIGRAM, BID
     Route: 048
  14. COVERAM [Concomitant]
     Active Substance: AMLODIPINE\PERINDOPRIL
     Dosage: UNK, QD
     Route: 048
  15. DUPIXENT [Concomitant]
     Active Substance: DUPILUMAB
     Dosage: 200 MILLIGRAM, Q2W
     Route: 058
  16. DYMISTA [Concomitant]
     Active Substance: AZELASTINE HYDROCHLORIDE\FLUTICASONE PROPIONATE
     Dosage: UNK, BID
     Route: 065
  17. EDRONAX [Concomitant]
     Active Substance: REBOXETINE MESYLATE
     Dosage: 4 MILLIGRAM, BID
     Route: 065
  18. ESOMEPRAZOLE [Concomitant]
     Active Substance: ESOMEPRAZOLE
     Dosage: 40 MILLIGRAM, BID
     Route: 048
  19. IMODIUM [Concomitant]
     Active Substance: LOPERAMIDE HYDROCHLORIDE
     Dosage: 2 MILLIGRAM, BID
     Route: 048
  20. KCL HAUSMANN [Concomitant]
     Dosage: 10 MILLIMOLE, QD
     Route: 048
  21. MAGNESIUM ASPARTATE HYDROCHLORIDE [Concomitant]
     Active Substance: MAGNESIUM ASPARTATE HYDROCHLORIDE
     Dosage: 10 MILLIMOLE, QD
     Route: 048
  22. NEBIVOLOL MEPHA [Concomitant]
     Dosage: 5 MILLIGRAM, QD
     Route: 048
  23. Novalgin [Concomitant]
     Dosage: 500 MILLIGRAM, QID
     Route: 048
  24. TORSEMIDE [Concomitant]
     Active Substance: TORSEMIDE
     Dosage: 5 MILLIGRAM, QD
     Route: 048
  25. ESCHERICHIA COLI [Concomitant]
     Active Substance: ESCHERICHIA COLI
     Dosage: 6 MILLIGRAM, QD
     Route: 048
  26. VITAMIN D3 [Concomitant]
     Active Substance: CHOLECALCIFEROL
     Dosage: 3 MILLILITER, QW (4000 I.E./ML) 4000 INTERNATIONAL UNIT PER MILLILITRE
     Route: 048
  27. DICLOFENAC SODIUM [Concomitant]
     Active Substance: DICLOFENAC\DICLOFENAC SODIUM
     Dosage: 10 MILLIGRAM PER GRAM, PRN (AS NECESSARY)
     Route: 003
  28. EMLA [Concomitant]
     Active Substance: LIDOCAINE\PRILOCAINE
     Dosage: UNK UNK, PRN (AS NECESSARY)
     Route: 003
  29. DICLOFENAC EPOLAMINE\HEPARIN SODIUM [Concomitant]
     Active Substance: DICLOFENAC EPOLAMINE\HEPARIN SODIUM
     Dosage: UNK UNK, PRN (AS NECESSARY)
     Route: 003
  30. IALUGEN PLUS [Concomitant]
     Dosage: UNK UNK, PRN (AS NECESSARY)
     Route: 003
  31. MONOVO [Concomitant]
     Dosage: 1 DOSAGE FORM (1 MILLIGRAM PER GRAM), PRN (AS NECESSARY)
     Route: 003
  32. NARATRIPTAN HYDROCHLORIDE [Concomitant]
     Active Substance: NARATRIPTAN HYDROCHLORIDE
     Dosage: 2.5 MILLIGRAM, PRN (AS NECESSARY)
     Route: 048
  33. Optiderm [Concomitant]
     Dosage: UNK UNK, PRN (AS NECESSARY)
     Route: 003
  34. Transipeg [Concomitant]
     Dosage: UNK UNK, PRN (AS NECESSARY)
     Route: 048
  35. NALOXON ORPHA [Concomitant]
     Dosage: 0.04 MILLIGRAM (100MG/ML), QD
     Route: 042
  36. BECOZYM-F [Concomitant]
     Dosage: 1 DOSAGE FORM, QD
     Route: 065
  37. HERBALS\HOPS\VALERIAN [Concomitant]
     Active Substance: HERBALS\HOPS\VALERIAN
     Dosage: UNK UNK, PRN (AS NECESSARY)
     Route: 065

REACTIONS (1)
  - Disturbance in attention [Recovering/Resolving]

NARRATIVE: CASE EVENT DATE: 20240413
